FAERS Safety Report 7353521-6 (Version None)
Quarter: 2011Q1

REPORT INFORMATION
  Report Type: 
  Country: None (occurrence: None)
  Receive Date: 20110307
  Receipt Date: 20100517
  Transmission Date: 20110831
  Serious: No
  Sender: FDA-Public Use
  Company Number: AEUSA201000172

PATIENT
  Age: 53 Year
  Sex: Female
  Weight: 77.5651 kg

DRUGS (6)
  1. ADVAIR DISKUS 100/50 [Concomitant]
  2. ALBUTEROL /00139501/ [Concomitant]
  3. PROLASTIN [Suspect]
     Indication: ALPHA-1 ANTI-TRYPSIN DEFICIENCY
     Dosage: ;QW; IV
     Route: 042
     Dates: start: 20070201
  4. PROLASTIN-C [Suspect]
     Indication: ALPHA-1 ANTI-TRYPSIN DEFICIENCY
     Dosage: QW;I V
     Route: 042
     Dates: start: 20100503
  5. SPIRIVA [Concomitant]
  6. BENADRYL /00000402/ [Concomitant]

REACTIONS (2)
  - PRURITUS [None]
  - URTICARIA [None]
